FAERS Safety Report 7315826-4 (Version None)
Quarter: 2011Q1

REPORT INFORMATION
  Report Type: 
  Country: None (occurrence: None)
  Receive Date: 20110225
  Receipt Date: 20110221
  Transmission Date: 20110831
  Serious: Yes (Hospitalization, Other)
  Sender: FDA-Public Use
  Company Number: US-ABBOTT-10P-163-0639822-00

PATIENT
  Sex: Male

DRUGS (17)
  1. METHOTREXATE [Concomitant]
     Indication: PSORIASIS
     Dates: end: 20100304
  2. BYSTOLIC [Concomitant]
     Indication: PRODUCT USED FOR UNKNOWN INDICATION
  3. JANUVIA [Concomitant]
     Indication: PRODUCT USED FOR UNKNOWN INDICATION
  4. VITAMIN D [Concomitant]
     Indication: VITAMIN SUPPLEMENTATION
  5. TRILIPIX [Concomitant]
     Indication: BLOOD CHOLESTEROL INCREASED
     Dates: start: 20090101
  6. LISINOPRIL [Concomitant]
     Indication: HYPERTENSION
  7. PLAVIX [Concomitant]
     Indication: PRODUCT USED FOR UNKNOWN INDICATION
  8. ASCORBIC ACID [Concomitant]
     Indication: VITAMIN SUPPLEMENTATION
  9. NEURONTIN [Concomitant]
     Indication: PRODUCT USED FOR UNKNOWN INDICATION
  10. NORVASC [Concomitant]
     Indication: HYPERTENSION
  11. CENTRUM SILVER [Concomitant]
     Indication: VITAMIN SUPPLEMENTATION
  12. HUMIRA [Suspect]
     Indication: PSORIASIS
     Route: 058
     Dates: end: 20100201
  13. LOVASTATIN [Concomitant]
     Indication: PRODUCT USED FOR UNKNOWN INDICATION
  14. LEXAPRO [Concomitant]
     Indication: PRODUCT USED FOR UNKNOWN INDICATION
  15. HUMIRA [Suspect]
     Indication: PSORIASIS
     Route: 058
     Dates: start: 20080601, end: 20100201
  16. GABAPENTIN [Concomitant]
     Indication: PRODUCT USED FOR UNKNOWN INDICATION
  17. FISH OIL [Concomitant]
     Indication: SUPPLEMENTATION THERAPY

REACTIONS (8)
  - B-CELL LYMPHOMA [None]
  - COMA [None]
  - LYMPHOMA [None]
  - BACK PAIN [None]
  - TRACHEOSTOMY [None]
  - NON-HODGKIN'S LYMPHOMA [None]
  - PNEUMONIA [None]
  - DEPENDENCE ON RESPIRATOR [None]
